FAERS Safety Report 12537937 (Version 6)
Quarter: 2018Q4

REPORT INFORMATION
  Report Type: Report from Study
  Country: DE (occurrence: DE)
  Receive Date: 20160707
  Receipt Date: 20181016
  Transmission Date: 20190204
  Serious: Yes (Hospitalization)
  Sender: FDA-Public Use
  Company Number: DE-ROCHE-1755961

PATIENT
  Age: 66 Year
  Sex: Male
  Weight: 75 kg

DRUGS (22)
  1. FLUOROURACIL. [Suspect]
     Active Substance: FLUOROURACIL
     Indication: COLORECTAL CANCER METASTATIC
     Dosage: LAST DOSE PRIOR TO SAE: 26/APR/2016 AT 13:30 (400 MG)
     Route: 040
     Dates: start: 20160316
  2. TAZOBAC [Concomitant]
     Active Substance: PIPERACILLIN SODIUM\TAZOBACTAM SODIUM
     Route: 065
     Dates: start: 20160329, end: 20160329
  3. CANDESARTAN. [Concomitant]
     Active Substance: CANDESARTAN
     Route: 065
  4. MOTILIUM [Concomitant]
     Active Substance: DOMPERIDONE
     Dosage: 25 UNIT
     Route: 065
     Dates: start: 20160409
  5. CALCIUM FOLINATE [Suspect]
     Active Substance: LEUCOVORIN CALCIUM
     Indication: COLORECTAL CANCER METASTATIC
     Dosage: LAST DOSE PRIOR TO SAE: 26/APR/2016 AT 13:30 (400 MG)
     Route: 042
     Dates: start: 20160316
  6. TRAVOPROST. [Concomitant]
     Active Substance: TRAVOPROST
     Route: 065
     Dates: end: 201702
  7. BEVACIZUMAB. [Suspect]
     Active Substance: BEVACIZUMAB
     Indication: COLORECTAL CANCER METASTATIC
     Dosage: DATE OF LAST DOSE PRIOR TO SAE: 26/APR/2016 AT 09:00 (325 MG)
     Route: 042
     Dates: start: 20160316
  8. TAZOBAC [Concomitant]
     Active Substance: PIPERACILLIN SODIUM\TAZOBACTAM SODIUM
     Route: 065
     Dates: start: 20150417, end: 20160422
  9. HCTZ [Concomitant]
     Active Substance: HYDROCHLOROTHIAZIDE
     Route: 065
  10. UNACID (AMPICILLIN SODIUM\SULBACTAM SODIUM) [Concomitant]
     Active Substance: AMPICILLIN SODIUM\SULBACTAM SODIUM
     Indication: DEHYDRATION
     Route: 065
     Dates: start: 20160329, end: 20160407
  11. TAZOBAC [Concomitant]
     Active Substance: PIPERACILLIN SODIUM\TAZOBACTAM SODIUM
     Route: 065
     Dates: start: 20160509, end: 20160516
  12. CEFUROXIM [Concomitant]
     Active Substance: CEFUROXIME
     Indication: PANCYTOPENIA
     Route: 065
     Dates: start: 20160417, end: 20160422
  13. IMODIUM AKUT [Concomitant]
     Active Substance: LOPERAMIDE
     Route: 065
     Dates: start: 20160409
  14. NEUPOGEN [Concomitant]
     Active Substance: FILGRASTIM
     Indication: NEUTROPENIA
     Dosage: 30 UNIT
     Route: 065
     Dates: start: 20160329, end: 20160330
  15. LOPERAMID [Concomitant]
     Active Substance: LOPERAMIDE
     Route: 065
     Dates: start: 20160329, end: 20160402
  16. ONDANSETRON [Concomitant]
     Active Substance: ONDANSETRON
     Route: 065
     Dates: start: 20160409
  17. UNACID (AMPICILLIN SODIUM\SULBACTAM SODIUM) [Concomitant]
     Active Substance: AMPICILLIN SODIUM\SULBACTAM SODIUM
     Indication: PNEUMONIA
     Route: 065
     Dates: start: 20160417, end: 20160424
  18. FLUOROURACIL. [Suspect]
     Active Substance: FLUOROURACIL
     Dosage: LAST DOSE PRIOR TO SAE: 26/APR/2016 AT 13:30 (2400 MG)
     Route: 041
     Dates: start: 20160316
  19. NITROLINGUAL [Concomitant]
     Active Substance: NITROGLYCERIN
     Route: 065
     Dates: start: 20160425, end: 20160425
  20. OXALIPLATIN. [Suspect]
     Active Substance: OXALIPLATIN
     Indication: COLORECTAL CANCER METASTATIC
     Dosage: LAST DOSE PRIOR TO SAE: 26/APR/2016 AT 13:30 (85 MG)
     Route: 042
     Dates: start: 20160316
  21. CANDESARTAN. [Concomitant]
     Active Substance: CANDESARTAN
     Route: 065
     Dates: start: 20160409
  22. NEUPOGEN [Concomitant]
     Active Substance: FILGRASTIM
     Indication: PANCYTOPENIA
     Route: 065
     Dates: start: 20160417, end: 20160422

REACTIONS (1)
  - Gastrointestinal necrosis [Recovered/Resolved]

NARRATIVE: CASE EVENT DATE: 20160509
